FAERS Safety Report 18187128 (Version 2)
Quarter: 2020Q3

REPORT INFORMATION
  Report Type: Spontaneous
  Country: JP (occurrence: JP)
  Receive Date: 20200824
  Receipt Date: 20200930
  Transmission Date: 20201103
  Serious: Yes (Other)
  Sender: FDA-Public Use
  Company Number: JP-009507513-2008JPN001476J

PATIENT
  Age: 6 Decade
  Sex: Male

DRUGS (3)
  1. KEYTRUDA [Suspect]
     Active Substance: PEMBROLIZUMAB
     Indication: LIP AND/OR ORAL CAVITY CANCER
     Dosage: 200 MILLIGRAM, Q3W
     Route: 041
     Dates: start: 202006
  2. 5?FU [Concomitant]
     Active Substance: FLUOROURACIL
     Indication: LIP AND/OR ORAL CAVITY CANCER
     Dosage: 1000 MILLIGRAM/SQ. METER
     Route: 051
     Dates: start: 202006
  3. CISPLATIN. [Concomitant]
     Active Substance: CISPLATIN
     Indication: LIP AND/OR ORAL CAVITY CANCER
     Dosage: 100 MILLIGRAM/SQ. METER
     Route: 051
     Dates: start: 202006

REACTIONS (2)
  - Leukopenia [Recovering/Resolving]
  - Hypomagnesaemia [Recovered/Resolved]

NARRATIVE: CASE EVENT DATE: 202006
